FAERS Safety Report 14422578 (Version 1)
Quarter: 2018Q1

REPORT INFORMATION
  Report Type: Spontaneous
  Country: US (occurrence: US)
  Receive Date: 20180123
  Receipt Date: 20180123
  Transmission Date: 20180509
  Serious: No
  Sender: FDA-Public Use
  Company Number: US-INSYS THERAPEUTICS, INC-INS201710-000633

PATIENT
  Age: 61 Year
  Sex: Female
  Weight: 51.7 kg

DRUGS (24)
  1. DEXAMETHASONE ELIXIR [Concomitant]
     Active Substance: DEXAMETHASONE
  2. POLYETHYLENE GLYCOL 3350 NF [Concomitant]
     Active Substance: POLYETHYLENE GLYCOL 3350
     Indication: CONSTIPATION
  3. SYNDROS [Suspect]
     Active Substance: DRONABINOL
     Indication: NAUSEA
     Route: 060
  4. NEXAVAR [Concomitant]
     Active Substance: SORAFENIB
     Indication: CHEMOTHERAPY
  5. CLOTRIMAZOLE. [Concomitant]
     Active Substance: CLOTRIMAZOLE
  6. DOXEPIN HCL [Concomitant]
     Active Substance: DOXEPIN HYDROCHLORIDE
     Indication: APPETITE DISORDER
  7. RANITIDINE HCL [Concomitant]
     Active Substance: RANITIDINE HYDROCHLORIDE
  8. LORAZEPAM. [Concomitant]
     Active Substance: LORAZEPAM
  9. TRIAMCINOLONE [Concomitant]
     Active Substance: TRIAMCINOLONE
  10. SYNDROS [Suspect]
     Active Substance: DRONABINOL
     Indication: VOMITING
  11. PENICILLIN VK [Concomitant]
     Active Substance: PENICILLIN V POTASSIUM
  12. MONTELUKAST SODIUM. [Concomitant]
     Active Substance: MONTELUKAST SODIUM
  13. ROSUVASTATIN CALCIUM. [Concomitant]
     Active Substance: ROSUVASTATIN CALCIUM
  14. TACROLIMUS. [Concomitant]
     Active Substance: TACROLIMUS
  15. FLUCONAZOLE. [Concomitant]
     Active Substance: FLUCONAZOLE
  16. ASPIRIN. [Concomitant]
     Active Substance: ASPIRIN
  17. SULFAMETHOXAZOLE/TRIMETHOPRIM [Concomitant]
     Active Substance: SULFAMETHOXAZOLE\TRIMETHOPRIM
  18. FENTANYL TRANSDERMAL SYSTEM [Concomitant]
     Active Substance: FENTANYL
     Indication: PAIN
  19. SUBSYS [Concomitant]
     Active Substance: FENTANYL
     Indication: BREAKTHROUGH PAIN
     Route: 060
  20. SYMPROIC [Concomitant]
     Active Substance: NALDEMEDINE
     Indication: CONSTIPATION
  21. PREDNISONE. [Concomitant]
     Active Substance: PREDNISONE
  22. ACYCLOVIR. [Concomitant]
     Active Substance: ACYCLOVIR
  23. METOCLOPRAMIDE. [Concomitant]
     Active Substance: METOCLOPRAMIDE
  24. ZOFRAN [Concomitant]
     Active Substance: ONDANSETRON HYDROCHLORIDE

REACTIONS (3)
  - Oral discomfort [Recovered/Resolved]
  - Incorrect route of drug administration [Unknown]
  - Inappropriate schedule of drug administration [Unknown]

NARRATIVE: CASE EVENT DATE: 201711
